FAERS Safety Report 23459716 (Version 1)
Quarter: 2024Q1

REPORT INFORMATION
  Report Type: Spontaneous
  Country: GB (occurrence: None)
  Receive Date: 20240131
  Receipt Date: 20240131
  Transmission Date: 20240410
  Serious: Yes (Disabling)
  Sender: FDA-Public Use
  Company Number: 2024A018131

PATIENT
  Age: 68 Year
  Sex: Female
  Weight: 77 kg

DRUGS (6)
  1. PULMICORT TURBUHALER [Suspect]
     Active Substance: BUDESONIDE
     Dosage: 2 TWO TIMES A DAY
     Route: 055
     Dates: start: 20210122
  2. BECLOMETHASONE DIPROPIONATE [Concomitant]
     Active Substance: BECLOMETHASONE DIPROPIONATE
     Dosage: 2
     Dates: start: 20231208
  3. LISINOPRIL [Concomitant]
     Active Substance: LISINOPRIL
     Indication: Hypertension
     Dosage: 1
     Dates: start: 20230811
  4. NITROFURANTOIN [Concomitant]
     Active Substance: NITROFURANTOIN
     Dosage: 1
     Dates: start: 20240119
  5. ESTRIOL [Concomitant]
     Active Substance: ESTRIOL
     Dosage: APPLY AT NIGHT ONCE DAILY UNTIL SYMPTOMS RESOLV...
     Dates: start: 20240119
  6. ALBUTEROL [Concomitant]
     Active Substance: ALBUTEROL
     Dosage: INHALE ONE TO TWO
     Dates: start: 20231222

REACTIONS (1)
  - Muscle spasms [Recovered/Resolved]

NARRATIVE: CASE EVENT DATE: 20231209
